FAERS Safety Report 11589571 (Version 5)
Quarter: 2016Q2

REPORT INFORMATION
  Report Type: Spontaneous
  Country: US (occurrence: US)
  Receive Date: 20151002
  Receipt Date: 20160411
  Transmission Date: 20160815
  Serious: Yes (Other)
  Sender: FDA-Public Use
  Company Number: US-JNJFOC-20150911338

PATIENT
  Age: 14 Year
  Sex: Male

DRUGS (3)
  1. RISPERDAL [Suspect]
     Active Substance: RISPERIDONE
     Indication: OPPOSITIONAL DEFIANT DISORDER
     Dosage: 1 MG AND 2 MG
     Route: 048
     Dates: start: 19980728, end: 19981108
  2. RISPERDAL [Suspect]
     Active Substance: RISPERIDONE
     Indication: ATTENTION DEFICIT/HYPERACTIVITY DISORDER
     Dosage: 1 MG AND 2 MG
     Route: 048
     Dates: start: 19980728, end: 19981108
  3. RISPERDAL [Suspect]
     Active Substance: RISPERIDONE
     Indication: INTERMITTENT EXPLOSIVE DISORDER
     Dosage: 1 MG AND 2 MG
     Route: 048
     Dates: start: 19980728, end: 19981108

REACTIONS (5)
  - Gynaecomastia [Unknown]
  - Arthralgia [Unknown]
  - Hyperprolactinaemia [Unknown]
  - Hypertension [Unknown]
  - Obesity [Unknown]

NARRATIVE: CASE EVENT DATE: 19981019
